FAERS Safety Report 12412137 (Version 2)
Quarter: 2016Q2

REPORT INFORMATION
  Report Type: Spontaneous
  Country: MX (occurrence: MX)
  Receive Date: 20160527
  Receipt Date: 20160530
  Transmission Date: 20160815
  Serious: Yes (Hospitalization)
  Sender: FDA-Public Use
  Company Number: MX-HORIZON-ACT-0130-2016

PATIENT
  Age: 14 Year
  Sex: Male
  Weight: 35 kg

DRUGS (1)
  1. IMUKIN [Suspect]
     Active Substance: INTERFERON GAMMA
     Indication: CHRONIC GRANULOMATOUS DISEASE
     Dosage: 38 MG ONCE DAILY
     Route: 058
     Dates: start: 20150724

REACTIONS (3)
  - Autoimmune hepatitis [Recovered/Resolved with Sequelae]
  - Off label use [Unknown]
  - Pyrexia [Recovered/Resolved with Sequelae]

NARRATIVE: CASE EVENT DATE: 20150724
